FAERS Safety Report 12125498 (Version 1)
Quarter: 2016Q1

REPORT INFORMATION
  Report Type: Spontaneous
  Country: US (occurrence: US)
  Receive Date: 20160229
  Receipt Date: 20160229
  Transmission Date: 20160526
  Serious: Yes (Hospitalization, Other)
  Sender: FDA-Public Use
  Company Number: US-ABBVIE-15P-163-1375344-00

PATIENT
  Age: 64 Year
  Sex: Male
  Weight: 98.06 kg

DRUGS (80)
  1. ANDROGEL [Suspect]
     Active Substance: TESTOSTERONE
     Indication: FATIGUE
     Route: 065
  2. WARFARIN SODIUM. [Concomitant]
     Active Substance: WARFARIN SODIUM
     Dates: start: 20120617
  3. WARFARIN SODIUM. [Concomitant]
     Active Substance: WARFARIN SODIUM
     Dosage: (LAST FILLED 21JAN2014, EXP 22OCT2014)
     Route: 048
  4. WARFARIN SODIUM. [Concomitant]
     Active Substance: WARFARIN SODIUM
     Dosage: (LAST FILLED 23APR2015, EXP 22APR2016)
     Route: 048
  5. ATORVASTATIN CALCIUM. [Concomitant]
     Active Substance: ATORVASTATIN CALCIUM
     Indication: PRODUCT USED FOR UNKNOWN INDICATION
     Dosage: (LAST FILLED 11JUN2013, EXP 21JUN2013)
     Route: 048
  6. PRANDIN [Concomitant]
     Active Substance: REPAGLINIDE
     Indication: PRODUCT USED FOR UNKNOWN INDICATION
     Dates: start: 20060804
  7. NASONEX [Concomitant]
     Active Substance: MOMETASONE FUROATE
     Indication: PRODUCT USED FOR UNKNOWN INDICATION
     Dates: start: 20061106
  8. VALTREX [Concomitant]
     Active Substance: VALACYCLOVIR HYDROCHLORIDE
     Indication: PRODUCT USED FOR UNKNOWN INDICATION
     Dates: start: 20090720
  9. AZITHROMYCIN ANHYDROUS. [Concomitant]
     Active Substance: AZITHROMYCIN ANHYDROUS
     Indication: PRODUCT USED FOR UNKNOWN INDICATION
     Dates: start: 20091215
  10. OXYCODONE-ACET [Concomitant]
     Indication: PRODUCT USED FOR UNKNOWN INDICATION
     Dosage: 5MG-325MG
     Dates: start: 20100317
  11. CARVEDILOL. [Concomitant]
     Active Substance: CARVEDILOL
     Indication: PRODUCT USED FOR UNKNOWN INDICATION
     Dates: start: 20110414
  12. CARVEDILOL. [Concomitant]
     Active Substance: CARVEDILOL
     Dates: start: 20110826
  13. ALLERGY [Concomitant]
     Active Substance: UNSPECIFIED INGREDIENT
     Indication: PRODUCT USED FOR UNKNOWN INDICATION
     Dates: start: 20120529
  14. ANDROGEL [Suspect]
     Active Substance: TESTOSTERONE
     Indication: ERECTILE DYSFUNCTION
  15. METOPROLOL TARTRATE. [Concomitant]
     Active Substance: METOPROLOL TARTRATE
     Route: 048
  16. CHLORTHALIDONE. [Concomitant]
     Active Substance: CHLORTHALIDONE
     Indication: PRODUCT USED FOR UNKNOWN INDICATION
     Dosage: (LAST FILLED 21JUL2014, EXP 30SEP2014)
     Route: 048
  17. ENOXAPARIN SODIUM. [Concomitant]
     Active Substance: ENOXAPARIN SODIUM
     Indication: PRODUCT USED FOR UNKNOWN INDICATION
     Dosage: SOLUTION (LAST FILLED 09APR2013, EXP 06APR2014)
     Route: 058
  18. LANTUS [Concomitant]
     Active Substance: INSULIN GLARGINE
     Dates: start: 20061106
  19. GLIMEPIRIDE. [Concomitant]
     Active Substance: GLIMEPIRIDE
     Indication: PRODUCT USED FOR UNKNOWN INDICATION
     Dates: start: 20060728
  20. PRANDIN [Concomitant]
     Active Substance: REPAGLINIDE
     Dates: start: 20061105
  21. PHENTOLAMINE MESYLATE. [Concomitant]
     Active Substance: PHENTOLAMINE MESYLATE
     Indication: PRODUCT USED FOR UNKNOWN INDICATION
     Dates: start: 20071215
  22. SYMLINPEN [Concomitant]
     Active Substance: PRAMLINTIDE ACETATE
     Indication: PRODUCT USED FOR UNKNOWN INDICATION
     Dosage: 1500/1.5ML
     Dates: start: 20090115
  23. ANASTROZOLE. [Concomitant]
     Active Substance: ANASTROZOLE
     Indication: PRODUCT USED FOR UNKNOWN INDICATION
     Dates: start: 20100715
  24. VERAPAMIL [Concomitant]
     Active Substance: VERAPAMIL HYDROCHLORIDE
     Indication: PRODUCT USED FOR UNKNOWN INDICATION
     Dates: start: 20110110
  25. VERAPAMIL [Concomitant]
     Active Substance: VERAPAMIL HYDROCHLORIDE
     Dates: start: 20110323
  26. VERAPAMIL [Concomitant]
     Active Substance: VERAPAMIL HYDROCHLORIDE
     Dates: start: 20110328
  27. CARVEDILOL. [Concomitant]
     Active Substance: CARVEDILOL
     Dates: start: 20110509
  28. ASTEPRO [Concomitant]
     Active Substance: AZELASTINE HYDROCHLORIDE
     Indication: PRODUCT USED FOR UNKNOWN INDICATION
     Dates: start: 20110919
  29. METOPROLOL TARTRATE. [Concomitant]
     Active Substance: METOPROLOL TARTRATE
     Dates: start: 2014
  30. WARFARIN SODIUM. [Concomitant]
     Active Substance: WARFARIN SODIUM
     Dosage: (LAST FILLED 21JAN2014, EXP 05MAY2014)
     Route: 048
  31. VYTORIN [Concomitant]
     Active Substance: EZETIMIBE\SIMVASTATIN
     Dosage: 10MG-80MG
     Dates: start: 20061106
  32. LANTUS [Concomitant]
     Active Substance: INSULIN GLARGINE
     Indication: PRODUCT USED FOR UNKNOWN INDICATION
     Dosage: 100ML(3)
     Dates: start: 20071120
  33. JANUVIA [Concomitant]
     Active Substance: SITAGLIPTIN PHOSPHATE
     Indication: PRODUCT USED FOR UNKNOWN INDICATION
     Dates: start: 20100715
  34. CLARITHROMYCIN. [Concomitant]
     Active Substance: CLARITHROMYCIN
     Indication: PRODUCT USED FOR UNKNOWN INDICATION
     Dates: start: 20101108
  35. WARFARIN SODIUM. [Concomitant]
     Active Substance: WARFARIN SODIUM
     Indication: PRODUCT USED FOR UNKNOWN INDICATION
     Dates: start: 20120504
  36. WARFARIN SODIUM. [Concomitant]
     Active Substance: WARFARIN SODIUM
     Dates: start: 20120522
  37. METFORMIN HCL [Concomitant]
     Active Substance: METFORMIN HYDROCHLORIDE
     Dosage: IN THE ER
     Dates: start: 20120612, end: 20120612
  38. LANTUS [Concomitant]
     Active Substance: INSULIN GLARGINE
     Indication: DIABETES MELLITUS
     Dates: start: 20060728
  39. LANTUS [Concomitant]
     Active Substance: INSULIN GLARGINE
     Dates: start: 2011
  40. AVANDIA [Concomitant]
     Active Substance: ROSIGLITAZONE MALEATE
     Indication: PRODUCT USED FOR UNKNOWN INDICATION
     Dates: start: 20060728
  41. GLIMEPIRIDE. [Concomitant]
     Active Substance: GLIMEPIRIDE
     Dates: start: 20061004
  42. VYTORIN [Concomitant]
     Active Substance: EZETIMIBE\SIMVASTATIN
     Indication: PRODUCT USED FOR UNKNOWN INDICATION
     Dosage: 10MG-80MG
     Dates: start: 20060818
  43. AMOX TR-POTASSIUM CLAVULANATE [Concomitant]
     Indication: PRODUCT USED FOR UNKNOWN INDICATION
     Dosage: 875-125MG
     Dates: start: 20071113
  44. ARIMIDEX [Concomitant]
     Active Substance: ANASTROZOLE
     Indication: PRODUCT USED FOR UNKNOWN INDICATION
     Dates: start: 20081129
  45. CIPROFLOXACIN HCL [Concomitant]
     Active Substance: CIPROFLOXACIN HYDROCHLORIDE
     Indication: PRODUCT USED FOR UNKNOWN INDICATION
     Dates: start: 20100913
  46. PRAVASTATIN SODIUM. [Concomitant]
     Active Substance: PRAVASTATIN SODIUM
     Indication: PRODUCT USED FOR UNKNOWN INDICATION
     Dates: start: 20110125
  47. WARFARIN SODIUM. [Concomitant]
     Active Substance: WARFARIN SODIUM
     Dosage: (LAST FILLED 11SEP2014, EXP 17APR2015)
     Route: 048
  48. FLUTICASONE PROPIONATE. [Concomitant]
     Active Substance: FLUTICASONE PROPIONATE
     Indication: PRODUCT USED FOR UNKNOWN INDICATION
     Dosage: NASAL SUSPENSION 50MCG/ACT (LAST FILLED 14SEP2013, EXP 28OCT2013)
  49. METFORMIN HCL [Concomitant]
     Active Substance: METFORMIN HYDROCHLORIDE
     Dosage: (LAST FILLED 02MAR2015, EXP 08JUL2015)
     Route: 048
  50. AMOXICILLIN. [Concomitant]
     Active Substance: AMOXICILLIN
     Indication: PRODUCT USED FOR UNKNOWN INDICATION
     Dates: start: 20061113
  51. INDOMETHACIN. [Concomitant]
     Active Substance: INDOMETHACIN
     Indication: PRODUCT USED FOR UNKNOWN INDICATION
     Dates: start: 20070524
  52. SIMCOR [Concomitant]
     Active Substance: NIACIN\SIMVASTATIN
     Indication: PRODUCT USED FOR UNKNOWN INDICATION
     Dosage: 500MG-20MG
     Dates: start: 20090115
  53. NOVOLOG [Concomitant]
     Active Substance: INSULIN ASPART
     Dosage: SOLUTION PEN-INJECTOR 100 UNIT/ML (LAST FILLED 23APR2015, EXP 08JUL2015)
     Route: 058
  54. NOVOLOG [Concomitant]
     Active Substance: INSULIN ASPART
     Dates: start: 2011
  55. PROVENTIL HFA [Concomitant]
     Active Substance: ALBUTEROL SULFATE
     Indication: BRONCHITIS
     Dosage: AEROSOL SOLUTION 108(90BASE)MCG/ACT (LAST FILLED 23APR2015, EXP 22APR2016)
     Route: 055
     Dates: start: 2012
  56. FLUTICASONE PROPIONATE. [Concomitant]
     Active Substance: FLUTICASONE PROPIONATE
     Dosage: NASAL SUSPENSION 50MCG/ACT (LAST FILLED 30MAR2015, EXP 11FEB2016)
  57. LOSARTAN POTASSIUM. [Concomitant]
     Active Substance: LOSARTAN POTASSIUM
     Indication: HYPERTENSION
     Route: 048
     Dates: start: 2014
  58. METFORMIN HCL [Concomitant]
     Active Substance: METFORMIN HYDROCHLORIDE
     Indication: PRODUCT USED FOR UNKNOWN INDICATION
     Dates: start: 20060926
  59. CHLORTHALIDONE. [Concomitant]
     Active Substance: CHLORTHALIDONE
     Dosage: (LAST FILLED 16JUN2014, EXP 06JAN2015)
     Route: 048
  60. AVANDIA [Concomitant]
     Active Substance: ROSIGLITAZONE MALEATE
     Dates: start: 20061105
  61. METANX [Concomitant]
     Active Substance: LEVOMEFOLATE CALCIUM\METHYLCOBALAMIN\PYRIDOXAL PHOSPHATE ANHYDROUS
     Indication: PRODUCT USED FOR UNKNOWN INDICATION
     Dosage: 2-3-35MG
     Dates: start: 20060901
  62. AMOX TR-POTASSIUM CLAVULANATE [Concomitant]
     Dosage: 875-126MG
     Dates: start: 20101115
  63. VERAPAMIL [Concomitant]
     Active Substance: VERAPAMIL HYDROCHLORIDE
     Dates: start: 20110414
  64. NOVOLOG [Concomitant]
     Active Substance: INSULIN ASPART
     Indication: DIABETES MELLITUS
     Dates: start: 20060728
  65. METOPROLOL TARTRATE. [Concomitant]
     Active Substance: METOPROLOL TARTRATE
     Indication: HYPERTENSION
     Dates: start: 20120605
  66. WARFARIN SODIUM. [Concomitant]
     Active Substance: WARFARIN SODIUM
     Dates: start: 20120511
  67. WARFARIN SODIUM. [Concomitant]
     Active Substance: WARFARIN SODIUM
     Dates: start: 20120617
  68. LISINOPRIL AND HYDROCHLOROTHIAZIDE [Concomitant]
     Active Substance: HYDROCHLOROTHIAZIDE\LISINOPRIL
     Indication: PRODUCT USED FOR UNKNOWN INDICATION
     Dosage: 20-12.5MG
     Dates: start: 20060728
  69. LISINOPRIL AND HYDROCHLOROTHIAZIDE [Concomitant]
     Active Substance: HYDROCHLOROTHIAZIDE\LISINOPRIL
     Dosage: 20-12.5MG
     Dates: start: 20061004
  70. CIPROFLOXACIN HCL [Concomitant]
     Active Substance: CIPROFLOXACIN HYDROCHLORIDE
     Indication: PRODUCT USED FOR UNKNOWN INDICATION
     Dates: start: 20070116
  71. BYETTA [Concomitant]
     Active Substance: EXENATIDE
     Indication: PRODUCT USED FOR UNKNOWN INDICATION
     Dosage: 10MCG/0.04
     Dates: start: 20070302
  72. ACTOS [Concomitant]
     Active Substance: PIOGLITAZONE HYDROCHLORIDE
     Indication: PRODUCT USED FOR UNKNOWN INDICATION
     Dates: start: 20071120
  73. BENZONATATE. [Concomitant]
     Active Substance: BENZONATATE
     Indication: PRODUCT USED FOR UNKNOWN INDICATION
     Dates: start: 20081014
  74. VERAPAMIL [Concomitant]
     Active Substance: VERAPAMIL HYDROCHLORIDE
     Dates: start: 20110730
  75. POTASSIUM CHLORIDE. [Concomitant]
     Active Substance: POTASSIUM CHLORIDE
     Indication: PRODUCT USED FOR UNKNOWN INDICATION
     Dates: start: 20110910
  76. WARFARIN SODIUM. [Concomitant]
     Active Substance: WARFARIN SODIUM
     Dosage: (LAST FILLED 21JAN2014, EXP 05MAY2014)
     Route: 048
  77. METFORMIN HCL [Concomitant]
     Active Substance: METFORMIN HYDROCHLORIDE
     Dates: start: 2014
  78. SYMUN [Concomitant]
     Indication: PRODUCT USED FOR UNKNOWN INDICATION
     Dosage: 600MCG/ML
     Dates: start: 20060826
  79. AMOXICILLIN. [Concomitant]
     Active Substance: AMOXICILLIN
     Dates: start: 20071215
  80. FUROSEMIDE. [Concomitant]
     Active Substance: FUROSEMIDE
     Indication: PRODUCT USED FOR UNKNOWN INDICATION
     Dates: start: 20110917

REACTIONS (6)
  - Pulmonary embolism [Not Recovered/Not Resolved]
  - Chest pain [Unknown]
  - Deep vein thrombosis [Not Recovered/Not Resolved]
  - Dyspnoea [Unknown]
  - Asthenia [Unknown]
  - Dizziness [Unknown]

NARRATIVE: CASE EVENT DATE: 20120229
